FAERS Safety Report 17333100 (Version 1)
Quarter: 2020Q1

REPORT INFORMATION
  Report Type: Spontaneous
  Country: CN (occurrence: CN)
  Receive Date: 20200128
  Receipt Date: 20200128
  Transmission Date: 20200409
  Serious: Yes (Other)
  Sender: FDA-Public Use
  Company Number: CN-ROCHE-2528297

PATIENT
  Age: 55 Year
  Sex: Female

DRUGS (11)
  1. ERLOTINIB [Concomitant]
     Active Substance: ERLOTINIB
     Dosage: QD
     Route: 048
  2. LENVATINIB [Concomitant]
     Active Substance: LENVATINIB
     Dosage: FOR 5 MONTHS (20 MG/QD).
     Route: 048
  3. OXALIPLATIN. [Concomitant]
     Active Substance: OXALIPLATIN
     Dosage: DAY 1
     Route: 065
  4. PEMBROLIZUMAB. [Concomitant]
     Active Substance: PEMBROLIZUMAB
     Dosage: FOR 8 TIMES (100 MG DAY 1)
     Route: 042
  5. IRINOTECAN [Concomitant]
     Active Substance: IRINOTECAN
     Route: 065
  6. PEMBROLIZUMAB. [Concomitant]
     Active Substance: PEMBROLIZUMAB
     Dosage: FOR 8 TIMES (100 MG EVERY 21 DAYS)
     Route: 042
  7. TRASTUZUMAB. [Concomitant]
     Active Substance: TRASTUZUMAB
     Route: 041
  8. GEMCITABINE. [Concomitant]
     Active Substance: GEMCITABINE
     Dosage: GS REGIMEN (GEMCITABINE 1000 MG/M2 DAY 1, DAY 8, AND S-1 100MG/D 1-14, QID [Q] 21D) WAS PERFORMED FO
     Route: 065
  9. TRASTUZUMAB EMTANSINE [Suspect]
     Active Substance: ADO-TRASTUZUMAB EMTANSINE
     Indication: PANCREATIC CARCINOMA
     Route: 042
  10. TRASTUZUMAB. [Concomitant]
     Active Substance: TRASTUZUMAB
     Dosage: TRASTUZUMAB FOR 4 TIMES (8 MG/KG D1, Q21D FOR THE FIRST TIME)
     Route: 041
  11. LAPATINIB [Concomitant]
     Active Substance: LAPATINIB
     Dosage: LAPATINIB 750 MG/D
     Route: 065

REACTIONS (1)
  - Pneumonia [Recovered/Resolved]
